FAERS Safety Report 7917701-0 (Version None)
Quarter: 2011Q4

REPORT INFORMATION
  Report Type: 
  Country: None (occurrence: None)
  Receive Date: 20111116
  Receipt Date: 20111110
  Transmission Date: 20120403
  Serious: Yes (Death, Hospitalization)
  Sender: FDA-Public Use
  Company Number: MX-BRISTOL-MYERS SQUIBB COMPANY-16226672

PATIENT
  Age: 69 Year
  Sex: Male

DRUGS (3)
  1. IRBESARTAN [Suspect]
     Indication: HYPERTENSION
     Route: 048
     Dates: end: 20110419
  2. PLAVIX [Suspect]
     Indication: PROPHYLAXIS
     Route: 048
     Dates: start: 20050101, end: 20110419
  3. ASPIRIN [Concomitant]
     Indication: PROPHYLAXIS
     Route: 048
     Dates: start: 20050101, end: 20110419

REACTIONS (4)
  - ASTHENIA [None]
  - ACUTE MYOCARDIAL INFARCTION [None]
  - CHEST PAIN [None]
  - HYPERHIDROSIS [None]
